FAERS Safety Report 10336974 (Version 2)
Quarter: 2014Q3

REPORT INFORMATION
  Report Type: Spontaneous
  Country: US (occurrence: US)
  Receive Date: 20140723
  Receipt Date: 20140723
  Transmission Date: 20150326
  Serious: Yes (Hospitalization, Disabling, Other)
  Sender: FDA-Public Use
  Company Number: US-009507513-2010SP006027

PATIENT
  Sex: Female
  Weight: 81.65 kg

DRUGS (1)
  1. NUVARING [Suspect]
     Active Substance: ETHINYL ESTRADIOL\ETONOGESTREL
     Indication: CONTRACEPTION
     Route: 067
     Dates: start: 200507, end: 20070202

REACTIONS (9)
  - Hypertension [Unknown]
  - Unintended pregnancy [Recovered/Resolved]
  - Bradycardia [Unknown]
  - Haemorrhagic anaemia [Unknown]
  - Back pain [Unknown]
  - Pulmonary embolism [Recovering/Resolving]
  - Pulmonary infarction [Unknown]
  - Migraine [Not Recovered/Not Resolved]
  - Abdominal pain [Unknown]

NARRATIVE: CASE EVENT DATE: 20060621
